FAERS Safety Report 4810281-8 (Version None)
Quarter: 2005Q4

REPORT INFORMATION
  Report Type: 
  Country: None (occurrence: None)
  Receive Date: 20051026
  Receipt Date: 20051021
  Transmission Date: 20060501
  Serious: Yes (Hospitalization, Other)
  Sender: FDA-Public Use
  Company Number: JP-SANOFI-SYNTHELABO-F01200502224

PATIENT
  Sex: Male
  Weight: 82 kg

DRUGS (23)
  1. CLOPIDOGREL [Suspect]
     Indication: ACUTE CORONARY SYNDROME
     Dosage: UNK
     Route: 048
     Dates: start: 20050715
  2. ACTOS [Concomitant]
     Indication: DIABETES MELLITUS
     Dosage: UNK
     Route: 065
     Dates: start: 19990101
  3. ASPIRIN BABY [Concomitant]
     Indication: ANTIPLATELET THERAPY
     Dosage: UNK
     Route: 065
     Dates: start: 20050702
  4. ATENOLOL [Concomitant]
     Indication: ANGINA PECTORIS
     Dosage: 50 MG
     Route: 065
     Dates: start: 19870101
  5. ZETIA [Concomitant]
     Indication: BLOOD CHOLESTEROL INCREASED
     Dosage: UNK
     Route: 065
     Dates: start: 20050703
  6. FLOVENT [Concomitant]
  7. LASIX [Concomitant]
     Indication: CARDIAC FAILURE CONGESTIVE
     Dosage: UNK
     Route: 065
     Dates: start: 20050702
  8. GLIPIZIDE [Concomitant]
     Indication: DIABETES MELLITUS
     Dosage: UNK
     Route: 065
     Dates: start: 19970101
  9. LISINOPRIL [Concomitant]
  10. METFORMIN [Concomitant]
  11. PROTONIX [Concomitant]
  12. K-DUR 10 [Concomitant]
     Indication: BALANCE DISORDER
     Dosage: UNK
     Dates: start: 20050703
  13. RESTORIL [Concomitant]
  14. ZOCOR [Concomitant]
  15. IMDUR [Concomitant]
     Indication: ANGINA PECTORIS
     Dosage: UNK
     Route: 065
     Dates: start: 20050707
  16. MOTRIN [Concomitant]
     Indication: ARTHRITIS
     Dosage: UNK
     Dates: start: 20000101
  17. SENOKOT [Concomitant]
  18. VYTORIN [Concomitant]
  19. INSULIN [Concomitant]
     Indication: DIABETES MELLITUS
  20. TYLENOL (CAPLET) [Concomitant]
     Indication: PAIN
  21. ADVAIR DISKUS 100/50 [Concomitant]
  22. METAGLIP [Concomitant]
  23. ACEON [Concomitant]

REACTIONS (8)
  - ABDOMINAL PAIN [None]
  - ANEURYSM [None]
  - CARDIAC FAILURE CONGESTIVE [None]
  - CEREBROVASCULAR ACCIDENT [None]
  - DIABETES MELLITUS INADEQUATE CONTROL [None]
  - HYPONATRAEMIA [None]
  - INTESTINAL ISCHAEMIA [None]
  - MENTAL STATUS CHANGES [None]
